FAERS Safety Report 7315064-5 (Version None)
Quarter: 2011Q1

REPORT INFORMATION
  Report Type: 
  Country: None (occurrence: None)
  Receive Date: 20110225
  Receipt Date: 20100324
  Transmission Date: 20110831
  Serious: No
  Sender: FDA-Public Use
  Company Number: US-MYLANLABS-2010S1005127

PATIENT
  Age: 42 Year
  Sex: Female

DRUGS (2)
  1. CLARAVIS [Suspect]
     Indication: ACNE
     Dates: start: 20091201
  2. AMNESTEEM [Suspect]
     Dates: end: 20100201

REACTIONS (2)
  - HEADACHE [None]
  - ALOPECIA [None]
